FAERS Safety Report 4778783-0 (Version None)
Quarter: 2005Q3

REPORT INFORMATION
  Report Type: 
  Country: None (occurrence: None)
  Receive Date: 20050922
  Receipt Date: 20050321
  Transmission Date: 20060218
  Serious: Yes (Other)
  Sender: FDA-Public Use
  Company Number: 200510139GDS

PATIENT
  Age: 53 Year
  Sex: Male
  Weight: 82 kg

DRUGS (6)
  1. NIMOTOP [Suspect]
     Indication: ANEURYSM
     Dosage: 10 ML, Q1HR, INTRAVENOUS
     Route: 042
     Dates: start: 20041127, end: 20041215
  2. NIMOTOP [Suspect]
     Indication: SUBARACHNOID HAEMORRHAGE
     Dosage: 10 ML, Q1HR, INTRAVENOUS
     Route: 042
     Dates: start: 20041127, end: 20041215
  3. PERFUSALGAN [Concomitant]
  4. ACTRAPID [Concomitant]
  5. ZANTAC [Concomitant]
  6. FRAXIPARINE [Concomitant]

REACTIONS (6)
  - CATHETER RELATED COMPLICATION [None]
  - NEUROLOGICAL SYMPTOM [None]
  - PHARMACEUTICAL PRODUCT COMPLAINT [None]
  - POST PROCEDURAL COMPLICATION [None]
  - VASOSPASM [None]
  - WRONG TECHNIQUE IN DRUG USAGE PROCESS [None]
